FAERS Safety Report 5508984-5 (Version None)
Quarter: 2007Q4

REPORT INFORMATION
  Report Type: 
  Country: None (occurrence: None)
  Receive Date: 20071031
  Receipt Date: 20070820
  Transmission Date: 20080405
  Serious: No
  Sender: FDA-Public Use
  Company Number: 2007PV033327

PATIENT
  Age: 64 Year
  Sex: Female

DRUGS (10)
  1. SYMLIN [Suspect]
     Indication: TYPE 2 DIABETES MELLITUS
     Dosage: 90 MCG;TID;SC   78 MCG;TID;SC   60 MCG;TID;SC
     Route: 058
     Dates: start: 20070813, end: 20070815
  2. SYMLIN [Suspect]
     Indication: TYPE 2 DIABETES MELLITUS
     Dosage: 90 MCG;TID;SC   78 MCG;TID;SC   60 MCG;TID;SC
     Route: 058
     Dates: start: 20070816, end: 20070818
  3. SYMLIN [Suspect]
     Indication: TYPE 2 DIABETES MELLITUS
     Dosage: 90 MCG;TID;SC   78 MCG;TID;SC   60 MCG;TID;SC
     Route: 058
     Dates: start: 20070819
  4. METFORMIN HCL [Concomitant]
  5. LANTUS [Concomitant]
  6. GLYBURIDE [Concomitant]
  7. HUMALOG [Concomitant]
  8. SYNTHROID [Concomitant]
  9. TOPROL-XL [Concomitant]
  10. CLONAZEPAM [Concomitant]

REACTIONS (1)
  - ABDOMINAL DISTENSION [None]
